FAERS Safety Report 10013491 (Version 2)
Quarter: 2014Q1

REPORT INFORMATION
  Report Type: Spontaneous
  Country: US (occurrence: US)
  Receive Date: 20140314
  Receipt Date: 20140314
  Transmission Date: 20141002
  Serious: Yes (Disabling)
  Sender: FDA-Public Use
  Company Number: US-GE HEALTHCARE MEDICAL DIAGNOSTICS-OSCN-PR-0811S-0598

PATIENT
  Age: 40 Year
  Sex: Female

DRUGS (5)
  1. OMNISCAN [Suspect]
     Indication: BLOOD PROLACTIN INCREASED
     Dosage: UNKNOWN
     Route: 042
     Dates: start: 20010322, end: 20010322
  2. OMNISCAN [Suspect]
     Indication: MIGRAINE
     Route: 042
     Dates: start: 20040813, end: 20040813
  3. OMNISCAN [Suspect]
     Indication: DIPLOPIA
     Route: 042
     Dates: start: 20051229, end: 20051229
  4. MAGNEVIST [Suspect]
     Indication: PRODUCT USED FOR UNKNOWN INDICATION
     Route: 042
     Dates: start: 20040914, end: 20040914
  5. MAGNEVIST [Suspect]
     Route: 042
     Dates: start: 20050120, end: 20050120

REACTIONS (1)
  - Nephrogenic systemic fibrosis [Not Recovered/Not Resolved]
